FAERS Safety Report 5558809-7 (Version None)
Quarter: 2007Q4

REPORT INFORMATION
  Report Type: 
  Country: None (occurrence: None)
  Receive Date: 20071214
  Receipt Date: 20071204
  Transmission Date: 20080405
  Serious: Yes (Hospitalization, Other)
  Sender: FDA-Public Use
  Company Number: US-PFIZER INC-2007103272

PATIENT
  Sex: Male
  Weight: 136.36 kg

DRUGS (1)
  1. CHANTIX [Suspect]
     Indication: EX-SMOKER
     Dates: start: 20071022, end: 20071101

REACTIONS (11)
  - ANKLE FRACTURE [None]
  - ANXIETY [None]
  - DEPRESSION [None]
  - EYE PAIN [None]
  - HEADACHE [None]
  - MOOD ALTERED [None]
  - PSYCHOTIC DISORDER [None]
  - ROAD TRAFFIC ACCIDENT [None]
  - SCREAMING [None]
  - SUICIDAL IDEATION [None]
  - THROMBOSIS [None]
